FAERS Safety Report 8262622-X (Version None)
Quarter: 2012Q2

REPORT INFORMATION
  Report Type: 
  Country: None (occurrence: None)
  Receive Date: 20120405
  Receipt Date: 20120327
  Transmission Date: 20120825
  Serious: Yes (Other)
  Sender: FDA-Public Use
  Company Number: US-JNJFOC-20111208813

PATIENT
  Sex: Male
  Weight: 87.09 kg

DRUGS (12)
  1. PENTASA [Concomitant]
     Indication: CROHN'S DISEASE
     Route: 048
  2. FOLTX [Concomitant]
     Indication: PRODUCT USED FOR UNKNOWN INDICATION
     Route: 048
  3. ALENDRONATE SODIUM [Concomitant]
     Route: 065
  4. ASPIRIN [Concomitant]
     Route: 065
  5. FOLIC ACID [Concomitant]
     Route: 065
  6. REMICADE [Suspect]
     Indication: CROHN'S DISEASE
     Route: 042
     Dates: start: 20110601
  7. LOMOTIL [Concomitant]
     Route: 065
  8. ALTACE [Concomitant]
     Route: 065
  9. MAGNESIUM [Concomitant]
     Route: 065
  10. FEOSOL [Concomitant]
     Route: 065
  11. SIMCOR [Concomitant]
     Indication: BLOOD CHOLESTEROL
     Route: 048
  12. COREG [Concomitant]
     Route: 065

REACTIONS (2)
  - CARDIOMYOPATHY [None]
  - VIRAL PERICARDITIS [None]
